FAERS Safety Report 4623220-X (Version None)
Quarter: 2005Q1

REPORT INFORMATION
  Report Type: 
  Country: None (occurrence: None)
  Receive Date: 20050329
  Receipt Date: 20050324
  Transmission Date: 20050727
  Serious: Yes (Other)
  Sender: FDA-Public Use
  Company Number: 163-20785-05030253

PATIENT
  Age: 38 Year
  Sex: Female

DRUGS (1)
  1. THALOMID [Suspect]
     Indication: CUTANEOUS LUPUS ERYTHEMATOSUS
     Dosage: 100 MG, QHS, ORAL/2 DAYS IN JAN05 NO LATER THAN 16JAN05
     Route: 048
     Dates: start: 20041202, end: 20041229

REACTIONS (4)
  - COMPLICATIONS OF MATERNAL EXPOSURE TO THERAPEUTIC DRUGS [None]
  - DIZZINESS [None]
  - PREGNANCY [None]
  - STOMACH DISCOMFORT [None]
